FAERS Safety Report 25712866 (Version 1)
Quarter: 2025Q3

REPORT INFORMATION
  Report Type: Spontaneous
  Country: EU (occurrence: EU)
  Receive Date: 20250821
  Receipt Date: 20250821
  Transmission Date: 20251020
  Serious: Yes (Life-Threatening)
  Sender: JOHNSON AND JOHNSON
  Company Number: None

PATIENT
  Age: 90 Year
  Sex: Male
  Weight: 73 kg

DRUGS (2)
  1. RISPERDAL [Suspect]
     Active Substance: RISPERIDONE
     Indication: Cognitive disorder
     Route: 048
     Dates: start: 20250729
  2. RISPERDAL [Suspect]
     Active Substance: RISPERIDONE

REACTIONS (5)
  - Coma [Recovering/Resolving]
  - Dysphagia [Recovering/Resolving]
  - Respiratory disorder [Recovering/Resolving]
  - Pneumonia aspiration [Recovering/Resolving]
  - Extrapyramidal disorder [Recovering/Resolving]

NARRATIVE: CASE EVENT DATE: 20250729
